FAERS Safety Report 6102963-5 (Version None)
Quarter: 2009Q1

REPORT INFORMATION
  Report Type: 
  Country: None (occurrence: None)
  Receive Date: 20090305
  Receipt Date: 20090219
  Transmission Date: 20090719
  Serious: Yes (Other)
  Sender: FDA-Public Use
  Company Number: PHHY2009BR06088

PATIENT
  Sex: Male
  Weight: 15 kg

DRUGS (5)
  1. TEGRETOL [Suspect]
     Indication: CONVULSION
     Dosage: UNK
     Route: 048
  2. TEGRETOL [Suspect]
     Dosage: 0.5 DF, BID
     Route: 048
  3. TEGRETOL [Suspect]
     Dosage: 0.5 DF, QD
     Route: 048
  4. VALPROATE SODIUM [Concomitant]
     Indication: CONVULSION
     Dosage: 24DROPS EVERY 12H
     Route: 048
  5. VALPROATE SODIUM [Concomitant]
     Dosage: 36 DROPS EVERY 12H.
     Route: 048

REACTIONS (3)
  - MUSCLE SPASMS [None]
  - SURGERY [None]
  - TONSILLAR DISORDER [None]
